FAERS Safety Report 6554855-5 (Version None)
Quarter: 2010Q1

REPORT INFORMATION
  Report Type: 
  Country: None (occurrence: None)
  Receive Date: 20100125
  Receipt Date: 20100113
  Transmission Date: 20100710
  Serious: Yes (Other)
  Sender: FDA-Public Use
  Company Number: OMPQ-PR-1001S-0018

PATIENT
  Age: 71 Year
  Sex: Male

DRUGS (1)
  1. OMNIPAQUE 350 [Suspect]
     Indication: DRUG USE FOR UNKNOWN INDICATION
     Dosage: 125 ML, SINGLE DOSE, EXTRAVASATION
     Dates: start: 20100112, end: 20100112

REACTIONS (1)
  - BLISTER [None]
